FAERS Safety Report 6583013-3 (Version None)
Quarter: 2010Q1

REPORT INFORMATION
  Report Type: 
  Country: None (occurrence: None)
  Receive Date: 20100216
  Receipt Date: 20100205
  Transmission Date: 20100710
  Serious: Yes (Other)
  Sender: FDA-Public Use
  Company Number: US-ROCHE-651653

PATIENT
  Sex: Male
  Weight: 73 kg

DRUGS (8)
  1. PEGASYS [Suspect]
     Indication: HEPATITIS C
     Route: 058
     Dates: start: 20090728
  2. PEGASYS [Suspect]
     Dosage: DISCONTINUED FOR THREE WEEKS
     Route: 058
     Dates: start: 20090918, end: 20091224
  3. PEGASYS [Suspect]
     Dosage: PRE-FILLED SYRINGE
     Route: 058
     Dates: start: 20100108
  4. RIBAPAK [Suspect]
     Indication: HEPATITIS C
     Dosage: DIVIDED DOSES
     Route: 048
     Dates: start: 20090728
  5. RIBAPAK [Suspect]
     Dosage: DISCONTINUED FOR THREE WEEKS
     Route: 048
     Dates: start: 20090918
  6. RIBAPAK [Suspect]
     Dosage: DIVIDED DOSES
     Route: 048
     Dates: start: 20100108
  7. CARVEDILOL [Concomitant]
     Route: 048
  8. HYDROCHLOROTHIAZIDE [Concomitant]

REACTIONS (11)
  - ANAEMIA [None]
  - BALANCE DISORDER [None]
  - BLOOD PRESSURE DECREASED [None]
  - DEPRESSED MOOD [None]
  - DEPRESSION [None]
  - EMPHYSEMA [None]
  - ERYTHEMA [None]
  - FATIGUE [None]
  - INFLUENZA LIKE ILLNESS [None]
  - INSOMNIA [None]
  - WEIGHT INCREASED [None]
